FAERS Safety Report 7037623-X (Version None)
Quarter: 2010Q4

REPORT INFORMATION
  Report Type: 
  Country: None (occurrence: None)
  Receive Date: 20101011
  Receipt Date: 20101005
  Transmission Date: 20110411
  Serious: Yes (Other)
  Sender: FDA-Public Use
  Company Number: PHHY2010CA66121

PATIENT
  Sex: Male

DRUGS (2)
  1. COMTAN [Suspect]
     Route: 048
  2. STALEVO 100 [Suspect]
     Route: 048

REACTIONS (3)
  - CHOKING [None]
  - DYSPHAGIA [None]
  - SALIVARY HYPERSECRETION [None]
